FAERS Safety Report 8791194 (Version 1)
Quarter: 2012Q4

REPORT INFORMATION
  Report Type: Spontaneous
  Country: US (occurrence: None)
  Receive Date: 20120913
  Receipt Date: 20120913
  Transmission Date: 20130627
  Serious: Yes (Other)
  Sender: FDA-Public Use
  Company Number: None

PATIENT
  Age: 35 Year
  Sex: Female
  Weight: 148.33 kg

DRUGS (1)
  1. ACTOS [Suspect]
     Indication: DIABETES
     Dates: start: 201112, end: 201207

REACTIONS (8)
  - Oedema [None]
  - Oedema peripheral [None]
  - Oedema peripheral [None]
  - Joint swelling [None]
  - Gait disturbance [None]
  - Unevaluable event [None]
  - Tooth extraction [None]
  - Respiratory disorder [None]
